FAERS Safety Report 17696174 (Version 2)
Quarter: 2020Q2

REPORT INFORMATION
  Report Type: Spontaneous
  Country: US (occurrence: US)
  Receive Date: 20200423
  Receipt Date: 20200506
  Transmission Date: 20200714
  Serious: Yes (Hospitalization, Other)
  Sender: FDA-Public Use
  Company Number: US-NAPPMUNDI-USA-2020-0151224

PATIENT
  Sex: Male

DRUGS (8)
  1. MORPHINE SULFATE (SIMILAR TO NDA 19-516) [Suspect]
     Active Substance: MORPHINE SULFATE
     Indication: INJURY
     Dosage: 3 X 30 MG, DAILY
     Route: 048
     Dates: start: 2000, end: 2010
  2. OXYCODONE HCL CR TABLETS (SIMILAR TO NDA 22-272) [Suspect]
     Active Substance: OXYCODONE HYDROCHLORIDE
     Dosage: 5 MG, TID
     Route: 048
  3. OXYCODONE HCL TABLETS (RHODES 91-490) [Suspect]
     Active Substance: OXYCODONE HYDROCHLORIDE
     Indication: INJURY
     Route: 048
  4. SYMBICORT [Suspect]
     Active Substance: BUDESONIDE\FORMOTEROL FUMARATE DIHYDRATE
     Indication: PRODUCT USED FOR UNKNOWN INDICATION
     Route: 065
  5. NARCAN [Suspect]
     Active Substance: NALOXONE HYDROCHLORIDE
     Indication: PRODUCT USED FOR UNKNOWN INDICATION
     Dosage: UNK
     Route: 065
  6. FENTANYL. [Suspect]
     Active Substance: FENTANYL
     Indication: INJURY
     Dosage: UNK
     Route: 062
     Dates: start: 2000
  7. METOPROLOL. [Suspect]
     Active Substance: METOPROLOL
     Indication: UNEVALUABLE THERAPY
     Route: 048
  8. OXYCODONE HCL CR TABLETS (SIMILAR TO NDA 22-272) [Suspect]
     Active Substance: OXYCODONE HYDROCHLORIDE
     Indication: INJURY
     Dosage: 30 MG, DAILY
     Route: 048
     Dates: start: 2010

REACTIONS (19)
  - Post-traumatic neck syndrome [Unknown]
  - Hospitalisation [Unknown]
  - Chromaturia [Unknown]
  - Chills [Unknown]
  - Cognitive disorder [Unknown]
  - Unevaluable event [Unknown]
  - Road traffic accident [Unknown]
  - Dizziness [Unknown]
  - Lethargy [Unknown]
  - Dyspnoea [Unknown]
  - Product prescribing issue [Unknown]
  - Balance disorder [Unknown]
  - Drug dependence [Unknown]
  - Drug withdrawal syndrome [Unknown]
  - Cardiac arrest [Unknown]
  - Arrhythmia [Unknown]
  - Injury [Unknown]
  - Vertigo [Unknown]
  - Memory impairment [Unknown]

NARRATIVE: CASE EVENT DATE: 2010
